FAERS Safety Report 5846647-7 (Version None)
Quarter: 2008Q3

REPORT INFORMATION
  Report Type: 
  Country: None (occurrence: None)
  Receive Date: 20080815
  Receipt Date: 20080721
  Transmission Date: 20090109
  Serious: Yes (Death, Hospitalization, Other)
  Sender: FDA-Public Use
  Company Number: B0521310A

PATIENT
  Age: 58 Year
  Sex: Female
  Weight: 63.8 kg

DRUGS (8)
  1. LAPATINIB [Suspect]
     Dosage: 1250MG PER DAY
     Route: 048
     Dates: start: 20071128, end: 20080507
  2. CAPECITABINE [Suspect]
     Dosage: 800MG TWICE PER DAY
     Route: 048
     Dates: start: 20071128, end: 20080507
  3. ATENOLOL [Concomitant]
     Dosage: 25MG PER DAY
     Route: 048
  4. BENDROFLUAZIDE [Concomitant]
     Dosage: 2.5MG PER DAY
     Route: 048
     Dates: start: 20080611
  5. LAMOTRIGINE [Concomitant]
     Route: 048
  6. LEVOTHYROXINE SODIUM [Concomitant]
     Dosage: 150MG PER DAY
     Route: 065
  7. BECLOMETHASONE DIPROPIONATE [Concomitant]
     Dosage: 100MCG TWICE PER DAY
     Route: 055
  8. ENOXAPARIN SODIUM [Concomitant]
     Dosage: 40MG PER DAY
     Route: 058

REACTIONS (6)
  - BILIARY SEPSIS [None]
  - CONFUSIONAL STATE [None]
  - DISEASE PROGRESSION [None]
  - HYPOKALAEMIA [None]
  - JAUNDICE [None]
  - LIVER FUNCTION TEST ABNORMAL [None]
